FAERS Safety Report 6290661-7 (Version None)
Quarter: 2009Q3

REPORT INFORMATION
  Report Type: 
  Country: None (occurrence: None)
  Receive Date: 20090727
  Receipt Date: 20080918
  Transmission Date: 20100115
  Serious: Yes (Hospitalization)
  Sender: FDA-Public Use
  Company Number: OMPQ-PR-0809S-0841

PATIENT
  Age: 76 Year
  Sex: Female

DRUGS (1)
  1. OMNIPAQUE 300 [Suspect]
     Indication: DRUG USE FOR UNKNOWN INDICATION
     Dosage: 50 ML, SINGLE DOSE, IV
     Route: 042
     Dates: start: 20080915, end: 20080915

REACTIONS (1)
  - ATRIAL FIBRILLATION [None]
